FAERS Safety Report 5004751-X (Version None)
Quarter: 2006Q1

REPORT INFORMATION
  Report Type: 
  Country: None (occurrence: None)
  Receive Date: 20060321
  Receipt Date: 20060123
  Transmission Date: 20060701
  Serious: No
  Sender: FDA-Public Use
  Company Number: YPA20050617

PATIENT
  Age: 75 Year
  Sex: Female
  Weight: 65.9 kg

DRUGS (8)
  1. VESICARE [Suspect]
     Indication: STRESS INCONTINENCE
     Dosage: 5 MG, UID/QD, ORAL
     Route: 048
     Dates: start: 20050912, end: 20051201
  2. NAPROSYN [Concomitant]
  3. TENORMIN [Concomitant]
  4. PLAVIX [Concomitant]
  5. VYTORIN [Concomitant]
  6. HYZAAR [Concomitant]
  7. LASIX [Concomitant]
  8. MICRO X EXTENCAPS (POTASSIUM CHLORIDE) [Concomitant]

REACTIONS (1)
  - ALOPECIA [None]
